FAERS Safety Report 5353500-4 (Version None)
Quarter: 2007Q2

REPORT INFORMATION
  Report Type: 
  Country: None (occurrence: None)
  Receive Date: 20070608
  Receipt Date: 20070522
  Transmission Date: 20071010
  Serious: Yes (Hospitalization)
  Sender: FDA-Public Use
  Company Number: 2007BI001881

PATIENT
  Age: 45 Year
  Sex: Female
  Weight: 60 kg

DRUGS (4)
  1. AVONEX [Suspect]
     Indication: MULTIPLE SCLEROSIS
     Dosage: 30 UG;QW; IM
     Route: 030
     Dates: start: 20040101, end: 20070327
  2. AVONEX [Suspect]
     Indication: MULTIPLE SCLEROSIS
     Dosage: 30 UG;QW; IM
     Route: 030
     Dates: start: 20070115, end: 20070122
  3. AVONEX [Suspect]
     Indication: MULTIPLE SCLEROSIS
     Dosage: 30 UG;QW; IM
     Route: 030
     Dates: start: 20070312, end: 20070327
  4. MITOXANTRONE [Concomitant]

REACTIONS (7)
  - ANXIETY [None]
  - HELICOBACTER INFECTION [None]
  - INFLUENZA LIKE ILLNESS [None]
  - MUSCULOSKELETAL DISORDER [None]
  - PARAPARESIS [None]
  - RASH [None]
  - RESTLESSNESS [None]
